APPROVED DRUG PRODUCT: NUPLAZID
Active Ingredient: PIMAVANSERIN TARTRATE
Strength: EQ 10MG BASE
Dosage Form/Route: TABLET;ORAL
Application: N207318 | Product #002
Applicant: ACADIA PHARMACEUTICALS INC
Approved: Jun 28, 2018 | RLD: Yes | RS: Yes | Type: RX

PATENTS:
Patent 10517860 | Expires: Mar 23, 2037
Patent 10953000 | Expires: Mar 23, 2037
Patent 7659285 | Expires: Aug 24, 2026
Patent 7601740 | Expires: Apr 29, 2030
Patent 7732615 | Expires: Jun 3, 2028